FAERS Safety Report 13739622 (Version 1)
Quarter: 2017Q3

REPORT INFORMATION
  Report Type: Spontaneous
  Country: US (occurrence: US)
  Receive Date: 20170710
  Receipt Date: 20170710
  Transmission Date: 20171127
  Serious: No
  Sender: FDA-Public Use
  Company Number: US-AMGEN-USASP2017101874

PATIENT
  Age: 55 Year
  Sex: Female

DRUGS (1)
  1. ENBREL [Suspect]
     Active Substance: ETANERCEPT
     Indication: RHEUMATOID ARTHRITIS
     Dosage: 50 MG, QWK
     Route: 058
     Dates: start: 20170623

REACTIONS (5)
  - Sputum discoloured [Unknown]
  - Productive cough [Unknown]
  - Oropharyngeal pain [Unknown]
  - Sneezing [Unknown]
  - Injection site pain [Unknown]

NARRATIVE: CASE EVENT DATE: 2017
